FAERS Safety Report 9384635 (Version 1)
Quarter: 2013Q3

REPORT INFORMATION
  Report Type: Spontaneous
  Country: PL (occurrence: PL)
  Receive Date: 20130705
  Receipt Date: 20130705
  Transmission Date: 20140515
  Serious: Yes (Hospitalization)
  Sender: FDA-Public Use
  Company Number: PL-GALDERMA-PL13002051

PATIENT
  Age: 18 Year
  Sex: Female

DRUGS (1)
  1. EPIDUO [Suspect]
     Dosage: 0.1%-2.5%
     Route: 061
     Dates: start: 20130625, end: 20130625

REACTIONS (2)
  - Face oedema [Unknown]
  - Erythema [Unknown]
